FAERS Safety Report 6337520-9 (Version None)
Quarter: 2009Q3

REPORT INFORMATION
  Report Type: 
  Country: None (occurrence: None)
  Receive Date: 20090902
  Receipt Date: 20090827
  Transmission Date: 20100115
  Serious: Yes (Death, Hospitalization, Other)
  Sender: FDA-Public Use
  Company Number: PHHY2009CA31236

PATIENT
  Sex: Female

DRUGS (9)
  1. CLOZARIL [Suspect]
     Indication: BIPOLAR DISORDER
     Dosage: 325 MG, QHS
     Route: 048
     Dates: start: 20061224, end: 20090713
  2. CLOZARIL [Suspect]
     Indication: SCHIZOAFFECTIVE DISORDER
  3. ATORVASTATIN [Concomitant]
     Dosage: 20 MG/DAY
  4. ZOPICLONE [Concomitant]
     Dosage: 7.5 UNK, QHS
  5. ACETAMINOPHEN [Concomitant]
     Dosage: 975 MG, QD
  6. DEXTROAMPHETAMINE [Concomitant]
     Dosage: 10 MG, QD
  7. LEVOTHYROXINE [Concomitant]
     Dosage: 112 UG, UNK
  8. VALPROIC ACID [Concomitant]
     Dosage: 750 MG, BID
  9. ALTACE [Concomitant]
     Dosage: 2.5 MG, UNK

REACTIONS (20)
  - ANAEMIA [None]
  - ASPIRATION [None]
  - ASTHENIA [None]
  - BEDRIDDEN [None]
  - BIPOLAR DISORDER [None]
  - DEATH [None]
  - DECREASED APPETITE [None]
  - DYSLIPIDAEMIA [None]
  - DYSPHAGIA [None]
  - GAIT DISTURBANCE [None]
  - HAEMATOCRIT DECREASED [None]
  - HAEMOGLOBIN DECREASED [None]
  - HYPOALBUMINAEMIA [None]
  - OBESITY [None]
  - PNEUMONIA ASPIRATION [None]
  - RED BLOOD CELL COUNT DECREASED [None]
  - RENAL FAILURE [None]
  - SEPSIS [None]
  - SOMNOLENCE [None]
  - WHITE BLOOD CELL COUNT INCREASED [None]
